FAERS Safety Report 12836233 (Version 1)
Quarter: 2016Q4

REPORT INFORMATION
  Report Type: Spontaneous
  Country: US (occurrence: US)
  Receive Date: 20161010
  Receipt Date: 20161010
  Transmission Date: 20170207
  Serious: No
  Sender: FDA-Public Use
  Company Number: None

PATIENT
  Age: 57 Year
  Sex: Male

DRUGS (4)
  1. ALFUZOSIN ER [Concomitant]
  2. TESTOPEL TROCAR DEVICE ENDO PHARMACEUTICLAS [Suspect]
     Active Substance: DEVICE
     Indication: TESTICULAR FAILURE
     Dosage: 1 DEVICE Q 4 MONTHS SQ
     Route: 058
     Dates: start: 20160615
  3. TESTOPEL [Suspect]
     Active Substance: TESTOSTERONE
     Indication: TESTICULAR FAILURE
     Dosage: 15 PELLETS Q 4 MONTHS SQ
     Route: 058
     Dates: start: 20160615
  4. CIALIS [Concomitant]
     Active Substance: TADALAFIL

REACTIONS (1)
  - Arthralgia [None]

NARRATIVE: CASE EVENT DATE: 201606
